FAERS Safety Report 9989183 (Version 1)
Quarter: 2014Q1

REPORT INFORMATION
  Report Type: Spontaneous
  Country: US (occurrence: US)
  Receive Date: 20140310
  Receipt Date: 20140310
  Transmission Date: 20141002
  Serious: Yes (Hospitalization, Other)
  Sender: FDA-Public Use
  Company Number: US-SA-2014SA028403

PATIENT
  Sex: Male
  Weight: 81.64 kg

DRUGS (4)
  1. PLAVIX [Suspect]
     Indication: TRANSIENT ISCHAEMIC ATTACK
     Route: 048
     Dates: start: 1996
  2. ASPIRIN [Suspect]
     Route: 065
  3. WARFARIN [Suspect]
     Dosage: 2 MG 5 DAYS A WEEK
     Route: 065
  4. WARFARIN [Suspect]
     Dosage: 1 MG 2 DAYS A WEEK
     Route: 065

REACTIONS (6)
  - Aortic valve disease [Unknown]
  - Arthropathy [Unknown]
  - Pulmonary congestion [Recovering/Resolving]
  - Blood disorder [Unknown]
  - International normalised ratio decreased [Unknown]
  - Eye disorder [Unknown]
